FAERS Safety Report 6439583-9 (Version None)
Quarter: 2009Q4

REPORT INFORMATION
  Report Type: 
  Country: None (occurrence: None)
  Receive Date: 20091113
  Receipt Date: 20091104
  Transmission Date: 20100525
  Serious: Yes (Death)
  Sender: FDA-Public Use
  Company Number: B0601540A

PATIENT
  Age: 81 Year
  Sex: Male

DRUGS (1)
  1. REQUIP XL [Suspect]
     Indication: PARKINSON'S DISEASE
     Route: 048
     Dates: start: 20091008, end: 20091012

REACTIONS (2)
  - BRONCHOPNEUMONIA [None]
  - NEUTROPENIC SEPSIS [None]
